FAERS Safety Report 22209195 (Version 5)
Quarter: 2023Q4

REPORT INFORMATION
  Report Type: Spontaneous
  Country: US (occurrence: US)
  Receive Date: 20230413
  Receipt Date: 20231108
  Transmission Date: 20240110
  Serious: Yes (Other)
  Sender: FDA-Public Use
  Company Number: US-BRISTOL-MYERS SQUIBB COMPANY-2023-050731

PATIENT
  Age: 74 Year
  Sex: Female
  Weight: 74.84 kg

DRUGS (2)
  1. LENALIDOMIDE [Suspect]
     Active Substance: LENALIDOMIDE
     Indication: Plasma cell myeloma recurrent
     Dosage: TAKE 1 CAPSULE BY MOUTH EVERY DAY FOR 21 DAYS FOLLOWED BY 7 DAYS OFF
     Route: 048
     Dates: start: 20221103
  2. NINLARO [Concomitant]
     Active Substance: IXAZOMIB CITRATE
     Indication: Product used for unknown indication

REACTIONS (10)
  - Fall [Unknown]
  - Gastroenteritis viral [Recovering/Resolving]
  - Fatigue [Not Recovered/Not Resolved]
  - Nasopharyngitis [Recovered/Resolved]
  - Drug ineffective [Unknown]
  - Full blood count abnormal [Unknown]
  - Joint swelling [Unknown]
  - Anaemia [Unknown]
  - Increased appetite [Unknown]
  - Diarrhoea [Unknown]
